FAERS Safety Report 14185796 (Version 1)
Quarter: 2017Q4

REPORT INFORMATION
  Report Type: Spontaneous
  Country: US (occurrence: None)
  Receive Date: 20171112
  Receipt Date: 20171112
  Transmission Date: 20180321
  Serious: No
  Sender: FDA-Public Use
  Company Number: None

PATIENT
  Age: 57 Year
  Sex: Male

DRUGS (1)
  1. HUMIRA [Suspect]
     Active Substance: ADALIMUMAB
     Indication: CROHN^S DISEASE
     Dosage: 40MG 4 PENS SUB/2 PENS TWO WEEKS LATER INJECTION
     Dates: start: 20170925, end: 20170925

REACTIONS (1)
  - Large intestine perforation [None]

NARRATIVE: CASE EVENT DATE: 20170928
